FAERS Safety Report 5089664-X (Version None)
Quarter: 2006Q3

REPORT INFORMATION
  Report Type: 
  Country: None (occurrence: None)
  Receive Date: 20060731
  Receipt Date: 20051102
  Transmission Date: 20061208
  Serious: Yes (Hospitalization)
  Sender: FDA-Public Use
  Company Number: USA0511112679

PATIENT
  Age: 69 Year
  Sex: Male

DRUGS (2)
  1. FORTEO [Suspect]
  2. FORTEO [Concomitant]

REACTIONS (1)
  - DYSPNOEA [None]
